FAERS Safety Report 23333032 (Version 1)
Quarter: 2023Q4

REPORT INFORMATION
  Report Type: Report from Study
  Country: US (occurrence: US)
  Receive Date: 20231222
  Receipt Date: 20231222
  Transmission Date: 20240110
  Serious: Yes (Life-Threatening, Hospitalization, Other)
  Sender: FDA-Public Use
  Company Number: US-SUN PHARMACEUTICAL INDUSTRIES LTD-2023R1-422637

PATIENT
  Sex: Female

DRUGS (1)
  1. CLOZAPINE [Suspect]
     Active Substance: CLOZAPINE
     Indication: Schizoaffective disorder
     Dosage: 300 MILLIGRAM AT BEDTIME
     Route: 048
     Dates: start: 20231004

REACTIONS (6)
  - Neutropenia [Unknown]
  - Mental status changes [Unknown]
  - Pyrexia [Unknown]
  - Delirium [Unknown]
  - Pneumonia [Unknown]
  - Pyrexia [Unknown]
